FAERS Safety Report 25524305 (Version 1)
Quarter: 2025Q3

REPORT INFORMATION
  Report Type: Spontaneous
  Country: EU (occurrence: EU)
  Receive Date: 20250707
  Receipt Date: 20250707
  Transmission Date: 20251021
  Serious: Yes (Hospitalization, Other)
  Sender: AUROBINDO
  Company Number: EU-AUROBINDO-AUR-APL-2025-033251

PATIENT
  Age: 13 Month
  Sex: Female

DRUGS (1)
  1. AMOXICILLIN\CLAVULANIC ACID [Suspect]
     Active Substance: AMOXICILLIN\CLAVULANIC ACID
     Indication: Upper respiratory tract infection
     Route: 065

REACTIONS (11)
  - Acrodermatitis enteropathica [Recovered/Resolved]
  - Perioral dermatitis [Recovered/Resolved]
  - Stomatitis [Recovered/Resolved]
  - Dermatitis diaper [Recovered/Resolved]
  - Rash papular [Recovered/Resolved]
  - Blister [Recovered/Resolved]
  - Paronychia [Recovered/Resolved]
  - Epidermolysis bullosa [Recovered/Resolved]
  - Diarrhoea [Recovered/Resolved]
  - Alopecia [Recovered/Resolved]
  - Dermatitis allergic [Recovered/Resolved]
